FAERS Safety Report 10146421 (Version 2)
Quarter: 2014Q2

REPORT INFORMATION
  Report Type: Spontaneous
  Country: US (occurrence: US)
  Receive Date: 20140501
  Receipt Date: 20140520
  Transmission Date: 20141212
  Serious: Yes (Death, Life-Threatening, Hospitalization, Disabling)
  Sender: FDA-Public Use
  Company Number: US-ACTELION-A-NJ2014-97761

PATIENT
  Age: 62 Year
  Sex: Male

DRUGS (20)
  1. TRACLEER [Suspect]
     Indication: PULMONARY ARTERIAL HYPERTENSION
     Dosage: 125 MG, BID
     Route: 048
     Dates: start: 200912
  2. TRACLEER [Suspect]
     Dosage: 62.5 MG, BID
     Route: 048
     Dates: start: 200911
  3. SILDENAFIL [Concomitant]
  4. COUMADIN [Concomitant]
  5. SYMBICORT [Concomitant]
  6. LORTAB [Concomitant]
  7. CITALOPRAM [Concomitant]
  8. SIMVASTATIN [Concomitant]
  9. VITAMIN B COMPLEX W C [Concomitant]
  10. TUMS [Concomitant]
  11. COREG [Concomitant]
  12. VITAMIN D3 [Concomitant]
  13. VITAMIN K [Concomitant]
  14. SYNTHROID [Concomitant]
  15. VITAMIN C [Concomitant]
  16. VITAMIN B6 [Concomitant]
  17. GLUCOSAMINE [Concomitant]
  18. PREVACID [Concomitant]
  19. CELEXA [Concomitant]
  20. ANDROGEL [Concomitant]

REACTIONS (2)
  - Pneumonia [Fatal]
  - Confusional state [Fatal]
